FAERS Safety Report 8849510 (Version 3)
Quarter: 2013Q2

REPORT INFORMATION
  Report Type: Spontaneous
  Country: US (occurrence: US)
  Receive Date: 20121019
  Receipt Date: 20130614
  Transmission Date: 20140414
  Serious: No
  Sender: FDA-Public Use
  Company Number: US-PFIZER INC-2012256899

PATIENT
  Age: 66 Year
  Sex: Female
  Weight: 75 kg

DRUGS (6)
  1. PREMARIN [Suspect]
     Indication: MENOPAUSE
     Dosage: 0.45 MG, UNK
  2. PREMARIN [Suspect]
     Indication: HOT FLUSH
     Dosage: 0.45 MG, UNK
     Route: 048
  3. NORVASC [Concomitant]
     Indication: HYPERTENSION
     Dosage: 5 MG, 1X/DAY
  4. LIPITOR [Concomitant]
     Indication: BLOOD CHOLESTEROL INCREASED
     Dosage: 10 MG, 1X/DAY
  5. PROVERA [Concomitant]
     Dosage: 10 MG, 1X/DAY (TO BE TAKEN FOR TEN DAYS IN A MONTH)
  6. METFORMIN [Concomitant]
     Dosage: 500 MG, 2X/DAY

REACTIONS (1)
  - Drug ineffective [Unknown]
